FAERS Safety Report 9402621 (Version 1)
Quarter: 2013Q3

REPORT INFORMATION
  Report Type: Report from Study
  Country: JP (occurrence: JP)
  Receive Date: 20130716
  Receipt Date: 20130716
  Transmission Date: 20140515
  Serious: Yes (Other)
  Sender: FDA-Public Use
  Company Number: JP-ROCHE-1248877

PATIENT
  Age: 59 Year
  Sex: Female

DRUGS (6)
  1. CLONAZEPAM [Suspect]
     Indication: DEPRESSION
     Route: 048
  2. CLONAZEPAM [Suspect]
     Indication: PARKINSONISM
  3. AMANTADINE [Suspect]
     Indication: DEPRESSION
     Route: 048
  4. AMANTADINE [Suspect]
     Indication: PARKINSONISM
  5. SETIPTILINE MALEATE [Suspect]
     Indication: DEPRESSION
     Route: 048
  6. SETIPTILINE MALEATE [Suspect]
     Indication: PARKINSONISM

REACTIONS (1)
  - Neuroleptic malignant syndrome [Recovered/Resolved]
